FAERS Safety Report 5820372-0 (Version None)
Quarter: 2008Q3

REPORT INFORMATION
  Report Type: 
  Country: None (occurrence: None)
  Receive Date: 20080724
  Receipt Date: 20070810
  Transmission Date: 20090109
  Serious: No
  Sender: FDA-Public Use
  Company Number: A0657632A

PATIENT
  Age: 51 Year
  Sex: Female

DRUGS (2)
  1. AVANDIA [Suspect]
     Indication: DRUG USE FOR UNKNOWN INDICATION
     Dosage: 8MG UNKNOWN
     Route: 048
  2. DIGOXIN [Concomitant]
     Dosage: .25MG PER DAY
     Route: 048

REACTIONS (3)
  - CARDIAC DISORDER [None]
  - ELECTROCARDIOGRAM REPOLARISATION ABNORMALITY [None]
  - ELECTROCARDIOGRAM ST SEGMENT DEPRESSION [None]
